FAERS Safety Report 15458298 (Version 4)
Quarter: 2019Q3

REPORT INFORMATION
  Report Type: Spontaneous
  Country: US (occurrence: US)
  Receive Date: 20181003
  Receipt Date: 20190916
  Transmission Date: 20191004
  Serious: No
  Sender: FDA-Public Use
  Company Number: US-PFIZER INC-2018397421

PATIENT
  Age: 63 Year
  Sex: Male

DRUGS (10)
  1. NEURONTIN [Suspect]
     Active Substance: GABAPENTIN
     Indication: ARTHRALGIA
  2. NEURONTIN [Suspect]
     Active Substance: GABAPENTIN
     Indication: ARTHRALGIA
  3. ELAVIL [Suspect]
     Active Substance: AMITRIPTYLINE HYDROCHLORIDE
     Indication: ARTHRITIS
  4. NEURONTIN [Suspect]
     Active Substance: GABAPENTIN
     Indication: BACK PAIN
  5. NEURONTIN [Suspect]
     Active Substance: GABAPENTIN
     Indication: NEUROPATHY PERIPHERAL
  6. NEURONTIN [Suspect]
     Active Substance: GABAPENTIN
     Indication: SPINAL FUSION SURGERY
  7. ELAVIL [Suspect]
     Active Substance: AMITRIPTYLINE HYDROCHLORIDE
     Indication: ARTHRALGIA
  8. NEURONTIN [Suspect]
     Active Substance: GABAPENTIN
     Indication: SCIATICA
  9. ELAVIL [Suspect]
     Active Substance: AMITRIPTYLINE HYDROCHLORIDE
     Indication: ARTHRALGIA
     Dosage: UNK
  10. NEURONTIN [Suspect]
     Active Substance: GABAPENTIN
     Indication: ARTHRITIS
     Dosage: 300 MG, 3X/DAY
     Route: 048

REACTIONS (2)
  - Off label use [Unknown]
  - Drug ineffective for unapproved indication [Unknown]
